FAERS Safety Report 8113341 (Version 2)
Quarter: 2013Q1

REPORT INFORMATION
  Report Type: Spontaneous
  Country: US (occurrence: US)
  Receive Date: 20110830
  Receipt Date: 20130114
  Transmission Date: 20140127
  Serious: Yes (Hospitalization)
  Sender: FDA-Public Use
  Company Number: US-GLAXOSMITHKLINE-A0928863A

PATIENT
  Age: 67 Year
  Sex: Male

DRUGS (1)
  1. AVANDIA [Suspect]
     Indication: DIABETES MELLITUS
     Dosage: 4MG PER DAY
     Route: 048
     Dates: start: 20030310, end: 200705

REACTIONS (6)
  - Cerebrovascular accident [Not Recovered/Not Resolved]
  - Renal failure [Unknown]
  - Atrial fibrillation [Unknown]
  - Palpitations [Unknown]
  - Total lung capacity decreased [Unknown]
  - Cardiac failure congestive [Unknown]
